FAERS Safety Report 15336295 (Version 7)
Quarter: 2019Q3

REPORT INFORMATION
  Report Type: Report from Study
  Country: US (occurrence: US)
  Receive Date: 20180830
  Receipt Date: 20190830
  Transmission Date: 20191004
  Serious: Yes (Hospitalization, Other)
  Sender: FDA-Public Use
  Company Number: US-ACTELION-A-NJ2018-177833

PATIENT
  Sex: Female
  Weight: 63.49 kg

DRUGS (2)
  1. VELETRI [Suspect]
     Active Substance: EPOPROSTENOL
     Dosage: UNK
     Route: 042
  2. VELETRI [Suspect]
     Active Substance: EPOPROSTENOL
     Indication: PULMONARY ARTERIAL HYPERTENSION
     Dosage: 61 NG/KG, PER MIN
     Route: 042

REACTIONS (8)
  - Neuropathy peripheral [Not Recovered/Not Resolved]
  - Pain in jaw [Not Recovered/Not Resolved]
  - Lung neoplasm malignant [Unknown]
  - Colon cancer [Unknown]
  - Abdominal pain [Unknown]
  - Nasopharyngitis [Not Recovered/Not Resolved]
  - Large intestinal obstruction [Unknown]
  - Rash [Not Recovered/Not Resolved]
